FAERS Safety Report 19483706 (Version 1)
Quarter: 2021Q3

REPORT INFORMATION
  Report Type: Other
  Country: US (occurrence: US)
  Receive Date: 20210701
  Receipt Date: 20210701
  Transmission Date: 20211014
  Serious: No
  Sender: FDA-Public Use
  Company Number: US-ROCHE-2791833

PATIENT
  Age: 38 Year
  Sex: Female

DRUGS (9)
  1. ZIPRASIDONE. [Concomitant]
     Active Substance: ZIPRASIDONE
  2. DEUTETRABENAZINE [Concomitant]
     Active Substance: DEUTETRABENAZINE
  3. ZIPRASIDONE. [Concomitant]
     Active Substance: ZIPRASIDONE
     Route: 048
     Dates: start: 20181209, end: 20181215
  4. PALIPERIDONE. [Concomitant]
     Active Substance: PALIPERIDONE
     Route: 030
  5. QUETIAPINE. [Concomitant]
     Active Substance: QUETIAPINE
     Dosage: WAS CONTINUED DURING 2 SEPARATE INPATIENT HOSPITALIZATIONS
     Route: 048
     Dates: start: 201609, end: 201610
  6. CLONAZEPAM. [Suspect]
     Active Substance: CLONAZEPAM
     Indication: TARDIVE DYSKINESIA
     Route: 065
  7. ARIPIPRAZOLE. [Concomitant]
     Active Substance: ARIPIPRAZOLE
     Route: 048
     Dates: start: 20181220, end: 20190102
  8. CARIPRAZINE [Concomitant]
     Active Substance: CARIPRAZINE
     Route: 048
     Dates: start: 201609, end: 201610
  9. DEUTETRABENAZINE [Concomitant]
     Active Substance: DEUTETRABENAZINE

REACTIONS (1)
  - Treatment failure [Unknown]
